FAERS Safety Report 6174396-7 (Version None)
Quarter: 2009Q2

REPORT INFORMATION
  Report Type: 
  Country: None (occurrence: None)
  Receive Date: 20090430
  Receipt Date: 20090421
  Transmission Date: 20091009
  Serious: Yes (Hospitalization, Other)
  Sender: FDA-Public Use
  Company Number: FR-PFIZER INC-2009200815

PATIENT

DRUGS (3)
  1. CELEBREX [Suspect]
     Indication: ARTHRALGIA
     Dosage: 200 MG, 1X/DAY
     Dates: start: 20090101, end: 20090401
  2. DOLIPRANE [Concomitant]
     Dosage: UNK
  3. LEVOTHYROX [Concomitant]

REACTIONS (1)
  - CARDIAC FAILURE [None]
